FAERS Safety Report 6895672-6 (Version None)
Quarter: 2010Q3

REPORT INFORMATION
  Report Type: 
  Country: None (occurrence: None)
  Receive Date: 20100730
  Receipt Date: 20100730
  Transmission Date: 20110219
  Serious: Yes (Other)
  Sender: FDA-Public Use
  Company Number: None

PATIENT
  Age: 54 Year
  Sex: Female
  Weight: 97.7 kg

DRUGS (1)
  1. CARAFATE [Suspect]
     Indication: OESOPHAGEAL ULCER
     Dosage: 2 TSP. 2 X SY ORAL
     Route: 048
     Dates: start: 20100720

REACTIONS (2)
  - MIGRAINE [None]
  - PRODUCT LABEL ISSUE [None]
